FAERS Safety Report 6709726-8 (Version None)
Quarter: 2010Q2

REPORT INFORMATION
  Report Type: 
  Country: None (occurrence: None)
  Receive Date: 20100504
  Receipt Date: 20100419
  Transmission Date: 20101027
  Serious: Yes (Hospitalization)
  Sender: FDA-Public Use
  Company Number: US-ROCHE-700501

PATIENT
  Age: 81 Year
  Sex: Female
  Weight: 54 kg

DRUGS (4)
  1. BONIVA [Suspect]
     Indication: ARTHRITIS
     Dosage: TAKING FOR SEVERAL YEARS
     Route: 048
  2. METHOTREXATE [Concomitant]
  3. FOLIC ACID [Concomitant]
  4. TRIAMTERENE [Concomitant]
     Dosage: DRUG REPORTED: TRIAMTERENE-HCTZ

REACTIONS (1)
  - FEMUR FRACTURE [None]
